FAERS Safety Report 6145664-X (Version None)
Quarter: 2009Q2

REPORT INFORMATION
  Report Type: 
  Country: None (occurrence: None)
  Receive Date: 20090407
  Receipt Date: 20090326
  Transmission Date: 20091009
  Serious: Yes (Hospitalization)
  Sender: FDA-Public Use
  Company Number: ES-JNJFOC-20090301253

PATIENT
  Age: 62 Year
  Sex: Male

DRUGS (5)
  1. REMICADE [Suspect]
     Dosage: 3RD INFUSION
     Route: 042
  2. REMICADE [Suspect]
     Route: 042
  3. REMICADE [Suspect]
     Indication: COLITIS ULCERATIVE
     Route: 042
  4. DACORTIN [Concomitant]
     Indication: COLITIS ULCERATIVE
     Dosage: DESCENDING DOSE
  5. IMUREL [Concomitant]
     Indication: COLITIS ULCERATIVE

REACTIONS (1)
  - PNEUMOCYSTIS JIROVECI INFECTION [None]
